FAERS Safety Report 6826406-9 (Version None)
Quarter: 2010Q3

REPORT INFORMATION
  Report Type: 
  Country: None (occurrence: None)
  Receive Date: 20100709
  Receipt Date: 20100629
  Transmission Date: 20110219
  Serious: Yes (Other)
  Sender: FDA-Public Use
  Company Number: US-JNJFOC-20100700933

PATIENT
  Age: 68 Year
  Sex: Male

DRUGS (4)
  1. PREZISTA [Suspect]
     Indication: HIV INFECTION
     Route: 048
  2. INTELENCE [Suspect]
     Indication: HIV INFECTION
     Dosage: DOSAGE: 100MG TABLETS X 2
     Route: 048
  3. NORVIR [Suspect]
     Indication: HIV INFECTION
     Route: 065
  4. ISENTRESS [Interacting]
     Indication: HIV INFECTION
     Route: 065

REACTIONS (2)
  - DRUG INTERACTION [None]
  - RHABDOMYOLYSIS [None]
